FAERS Safety Report 22098860 (Version 5)
Quarter: 2025Q2

REPORT INFORMATION
  Report Type: Spontaneous
  Country: US (occurrence: US)
  Receive Date: 20230315
  Receipt Date: 20250408
  Transmission Date: 20250716
  Serious: Yes (Hospitalization, Other)
  Sender: PFIZER
  Company Number: US-PFIZER INC-2021000450

PATIENT
  Age: 83 Year
  Sex: Male
  Weight: 73.94 kg

DRUGS (8)
  1. VYNDAMAX [Suspect]
     Active Substance: TAFAMIDIS
     Indication: Cardiac amyloidosis
     Dosage: 61 MG, 1X/DAY
     Route: 048
     Dates: start: 202010, end: 202502
  2. VYNDAMAX [Suspect]
     Active Substance: TAFAMIDIS
     Indication: Amyloidosis
  3. XARELTO [Concomitant]
     Active Substance: RIVAROXABAN
     Indication: Haemorrhage
     Route: 048
  4. ATORVASTATIN [Concomitant]
     Active Substance: ATORVASTATIN
     Indication: Blood cholesterol abnormal
     Dosage: 20 MG, 1X/DAY AT BEDTIME
     Route: 048
  5. SYNTHROID [Concomitant]
     Active Substance: LEVOTHYROXINE SODIUM
     Indication: Thyroid disorder
     Dosage: 0.137 MG, 1X/DAY EVERY MORNING AN HOUR BEFORE BREAKFAST
     Route: 048
  6. VITAMIN D3 [Concomitant]
     Active Substance: CHOLECALCIFEROL
     Indication: Vitamin D deficiency
     Dosage: 2000 IU, 1X/DAY TOOK TWO GEL PILLS AFTER DINNER
     Route: 048
  7. VITAMIN B12 [Concomitant]
     Active Substance: CYANOCOBALAMIN
     Indication: Vitamin B12 deficiency
     Dosage: 500 UG, 1X/DAY ( AFTER DINNER)
     Route: 048
  8. OMEPRAZOLE [Concomitant]
     Active Substance: OMEPRAZOLE
     Indication: Dysphagia
     Dosage: 40 MG, 1X/DAY (30-45 MINUTES BEFORE DINNER)
     Route: 048

REACTIONS (4)
  - Neoplasm malignant [Unknown]
  - Cardiac failure congestive [Unknown]
  - Disease progression [Unknown]
  - Cardiac amyloidosis [Unknown]
